FAERS Safety Report 6994322-8 (Version None)
Quarter: 2010Q3

REPORT INFORMATION
  Report Type: 
  Country: None (occurrence: None)
  Receive Date: 20100917
  Receipt Date: 20100910
  Transmission Date: 20110219
  Serious: Yes (Other)
  Sender: FDA-Public Use
  Company Number: PHHO2009AU10677

PATIENT
  Sex: Female
  Weight: 65 kg

DRUGS (4)
  1. CERTICAN [Suspect]
     Indication: RENAL TRANSPLANT
     Dosage: 2.25 MG, BID
     Route: 048
     Dates: start: 20090512
  2. MYFORTIC [Concomitant]
     Indication: RENAL TRANSPLANT
     Dosage: 720 MG, BID
     Route: 048
     Dates: start: 20090421, end: 20090515
  3. CYCLOSPORINE [Concomitant]
     Indication: RENAL TRANSPLANT
     Dosage: UNK
     Route: 048
     Dates: start: 20090421, end: 20090703
  4. PREDNISONE [Concomitant]
     Indication: RENAL TRANSPLANT

REACTIONS (3)
  - SKIN LESION [None]
  - SKIN LESION EXCISION [None]
  - SQUAMOUS CELL CARCINOMA [None]
